FAERS Safety Report 9775219 (Version 1)
Quarter: 2013Q4

REPORT INFORMATION
  Report Type: Spontaneous
  Country: US (occurrence: None)
  Receive Date: 20131219
  Receipt Date: 20131219
  Transmission Date: 20140711
  Serious: No
  Sender: FDA-Public Use
  Company Number: None

PATIENT
  Age: 9 Year
  Sex: Male
  Weight: 40.82 kg

DRUGS (1)
  1. CEFADROXIL [Suspect]
     Indication: SKIN INFECTION
     Dosage: 500MG/1 PILL, TWICE DAILY, TAKEN BY MOUTH
     Route: 048
     Dates: start: 20131206, end: 20131217

REACTIONS (1)
  - Drug hypersensitivity [None]
